FAERS Safety Report 15077559 (Version 3)
Quarter: 2021Q1

REPORT INFORMATION
  Report Type: Spontaneous
  Country: US (occurrence: US)
  Receive Date: 20180627
  Receipt Date: 20210211
  Transmission Date: 20210419
  Serious: Yes (Death, Hospitalization, Other)
  Sender: FDA-Public Use
  Company Number: US-BAYER-2018-057034

PATIENT
  Age: 74 Year
  Sex: Female

DRUGS (4)
  1. BAYER LOW DOSE [Suspect]
     Active Substance: ASPIRIN
     Indication: CEREBROVASCULAR ACCIDENT PROPHYLAXIS
     Dosage: 81 MG, QD
     Route: 048
  2. XARELTO [Suspect]
     Active Substance: RIVAROXABAN
     Indication: THROMBOSIS PROPHYLAXIS
  3. XARELTO [Suspect]
     Active Substance: RIVAROXABAN
     Indication: ATRIAL FIBRILLATION
     Dosage: UNK
     Route: 048
     Dates: start: 20120611, end: 20160408
  4. XARELTO [Suspect]
     Active Substance: RIVAROXABAN
     Indication: CEREBROVASCULAR ACCIDENT PROPHYLAXIS

REACTIONS (4)
  - Off label use [Unknown]
  - Prescribed underdose [Unknown]
  - Gastrointestinal haemorrhage [Recovering/Resolving]
  - Thrombocytopenia [Unknown]

NARRATIVE: CASE EVENT DATE: 20141120
